FAERS Safety Report 12676622 (Version 6)
Quarter: 2017Q1

REPORT INFORMATION
  Report Type: Spontaneous
  Country: US (occurrence: US)
  Receive Date: 20160823
  Receipt Date: 20170120
  Transmission Date: 20170428
  Serious: No
  Sender: FDA-Public Use
  Company Number: US-PFIZER INC-2016396312

PATIENT
  Age: 103 Year
  Sex: Female
  Weight: 64.4 kg

DRUGS (4)
  1. FULVESTRANT [Concomitant]
     Active Substance: FULVESTRANT
     Dosage: UNK, MONTHLY
  2. IBRANCE [Suspect]
     Active Substance: PALBOCICLIB
     Indication: BREAST CANCER FEMALE
     Dosage: 75 MG, CYCLIC (1 CAPSULE/DAILY FOR 21/DAYS)
     Route: 048
     Dates: start: 20160506
  3. IBRANCE [Suspect]
     Active Substance: PALBOCICLIB
     Dosage: 75 MG, CYCLIC, (D1-D21Q 28DAYS)
     Route: 048
     Dates: start: 20160508
  4. IBRANCE [Suspect]
     Active Substance: PALBOCICLIB
     Dosage: 75 MG, DAILY (1 CAP/DAILY)
     Route: 048

REACTIONS (5)
  - Hypoacusis [Unknown]
  - Fatigue [Unknown]
  - Alopecia [Unknown]
  - Skin lesion [Unknown]
  - Gait disturbance [Unknown]

NARRATIVE: CASE EVENT DATE: 2016
